FAERS Safety Report 5662022-2 (Version None)
Quarter: 2008Q1

REPORT INFORMATION
  Report Type: 
  Country: None (occurrence: None)
  Receive Date: 20080207
  Receipt Date: 20071011
  Transmission Date: 20080703
  Serious: Yes (Hospitalization)
  Sender: FDA-Public Use
  Company Number: T200701244

PATIENT
  Age: 27 Year
  Sex: Female
  Weight: 88.4 kg

DRUGS (2)
  1. OXCODONE/ACETAMINOPHEN(OXYCODONE HCL, ACETAMINOPHEN) TABLET, 5/325MG [Suspect]
     Indication: PROCEDURAL PAIN
     Dosage: 1-2 TABS, Q4-6H, PRN, ORAL
     Route: 048
     Dates: start: 20071005, end: 20071001
  2. ADDERALL XR (AMFETAMINE ASPARTATE, AMFETAMINE SULFATE, DEXAMFETAMINE S [Concomitant]

REACTIONS (2)
  - DRUG INEFFECTIVE [None]
  - PRURITUS [None]
